FAERS Safety Report 5794639-9 (Version None)
Quarter: 2008Q2

REPORT INFORMATION
  Report Type: 
  Country: None (occurrence: None)
  Receive Date: 20080627
  Receipt Date: 20080627
  Transmission Date: 20081010
  Serious: Yes (Hospitalization)
  Sender: FDA-Public Use
  Company Number: None

PATIENT
  Sex: Male
  Weight: 58.9676 kg

DRUGS (11)
  1. XELODA [Suspect]
     Indication: COLON CANCER METASTATIC
     Dosage: PRIOR TO ADMISSION (3 DAYS PRIOR)
  2. OXALIPLATIN [Suspect]
  3. AVASTIN [Suspect]
  4. ENALAPRIL MALEATE [Concomitant]
  5. VERAPAMIL [Concomitant]
  6. LASIX [Concomitant]
  7. FOLIC ACID [Concomitant]
  8. ACIPHEX [Concomitant]
  9. FERROUS SULFATE TAB [Concomitant]
  10. LOMOTIL [Concomitant]
  11. GLYBURIDE [Concomitant]

REACTIONS (4)
  - DEHYDRATION [None]
  - DIARRHOEA [None]
  - NAUSEA [None]
  - VOMITING [None]
